FAERS Safety Report 8399127-1 (Version None)
Quarter: 2012Q2

REPORT INFORMATION
  Report Type: 
  Country: None (occurrence: None)
  Receive Date: 20120531
  Receipt Date: 20120522
  Transmission Date: 20120825
  Serious: Yes (Other)
  Sender: FDA-Public Use
  Company Number: US-ASTRAZENECA-2012SE32763

PATIENT
  Age: 77 Year
  Sex: Male
  Weight: 93.4 kg

DRUGS (2)
  1. NEXIUM [Suspect]
     Indication: OESOPHAGEAL ACHALASIA
     Route: 048
  2. DIURETIC [Concomitant]
     Indication: BLOOD PRESSURE

REACTIONS (6)
  - OESOPHAGEAL POLYP [None]
  - WEIGHT INCREASED [None]
  - EROSIVE OESOPHAGITIS [None]
  - INSOMNIA [None]
  - GOUT [None]
  - OFF LABEL USE [None]
